FAERS Safety Report 23540448 (Version 1)
Quarter: 2024Q1

REPORT INFORMATION
  Report Type: Spontaneous
  Country: US (occurrence: US)
  Receive Date: 20240219
  Receipt Date: 20240219
  Transmission Date: 20240410
  Serious: No
  Sender: FDA-Public Use
  Company Number: US-Stemline Therapeutics, Inc.-2023ST004221

PATIENT
  Age: 46 Year
  Sex: Female
  Weight: 68.1 kg

DRUGS (1)
  1. ORSERDU [Suspect]
     Active Substance: ELACESTRANT
     Indication: Blastic plasmacytoid dendritic cell neoplasia
     Dosage: 345 MG ONCE A DAY
     Route: 048
     Dates: start: 20231009

REACTIONS (10)
  - Eructation [Not Recovered/Not Resolved]
  - Product dose omission issue [Unknown]
  - Dry skin [Unknown]
  - Carbohydrate antigen 27.29 increased [Not Recovered/Not Resolved]
  - Arthralgia [Unknown]
  - Gastrooesophageal reflux disease [Unknown]
  - Fatigue [Unknown]
  - Nausea [Unknown]
  - Hot flush [Unknown]
  - Disease progression [Unknown]
